FAERS Safety Report 4797307-5 (Version None)
Quarter: 2005Q4

REPORT INFORMATION
  Report Type: 
  Country: None (occurrence: None)
  Receive Date: 20051013
  Receipt Date: 20000328
  Transmission Date: 20060501
  Serious: Yes (Other)
  Sender: FDA-Public Use
  Company Number: US-MERCK-00032760

PATIENT
  Sex: Female

DRUGS (3)
  1. VIOXX [Suspect]
     Indication: OSTEOARTHRITIS
     Route: 048
     Dates: start: 20000301, end: 20000327
  2. AZMACORT [Concomitant]
     Route: 065
  3. PROVENTIL [Concomitant]
     Route: 065

REACTIONS (6)
  - ASTHMA [None]
  - CARDIOVASCULAR DISORDER [None]
  - DYSPNOEA [None]
  - RESPIRATORY TRACT CONGESTION [None]
  - SWELLING FACE [None]
  - TONGUE DISORDER [None]
